FAERS Safety Report 7668750-1 (Version None)
Quarter: 2011Q3

REPORT INFORMATION
  Report Type: 
  Country: None (occurrence: None)
  Receive Date: 20110803
  Receipt Date: 20110630
  Transmission Date: 20111222
  Serious: Yes (Congenital Anomaly, Other)
  Sender: FDA-Public Use
  Company Number: ES-ACCORD-010110

PATIENT
  Sex: Female

DRUGS (2)
  1. MYCOPHENOLATE MOFETIL [Suspect]
     Dosage: TRANSPLACENTAL
     Route: 064
  2. TACROLIMUS [Suspect]
     Dosage: TRANSPLACENTAL
     Route: 064

REACTIONS (13)
  - CONDUCTIVE DEAFNESS [None]
  - MATERNAL DRUGS AFFECTING FOETUS [None]
  - MICROTIA [None]
  - CAESAREAN SECTION [None]
  - POSTMATURE BABY [None]
  - EXTERNAL AUDITORY CANAL ATRESIA [None]
  - HYPERTELORISM OF ORBIT [None]
  - OSSICLE DISORDER [None]
  - CONGENITAL ANOMALIES OF EAR OSSICLES [None]
  - EYELID PTOSIS [None]
  - CLEFT LIP AND PALATE [None]
  - MICROGNATHIA [None]
  - COLOBOMA [None]
